FAERS Safety Report 7023784-5 (Version None)
Quarter: 2010Q3

REPORT INFORMATION
  Report Type: 
  Country: None (occurrence: None)
  Receive Date: 20100916
  Receipt Date: 20100611
  Transmission Date: 20110219
  Serious: No
  Sender: FDA-Public Use
  Company Number: DKLU1062899

PATIENT
  Age: 4 Year
  Sex: Female

DRUGS (7)
  1. SABRIL [Suspect]
  2. DEPAKOTE [Concomitant]
  3. TOPAMAX [Concomitant]
  4. KEPPRA [Concomitant]
  5. VALIUM [Concomitant]
  6. CLARITEN (GLICLAZIDE) [Concomitant]
  7. ALBUTEROL NEBULIZER SOLUTION (SALBUTAMOL) [Concomitant]

REACTIONS (4)
  - BRUXISM [None]
  - CONTUSION [None]
  - MUSCULOSKELETAL STIFFNESS [None]
  - TREMOR [None]
